FAERS Safety Report 6191154-8 (Version None)
Quarter: 2009Q2

REPORT INFORMATION
  Report Type: 
  Country: None (occurrence: None)
  Receive Date: 20090515
  Receipt Date: 20090507
  Transmission Date: 20091009
  Serious: Yes (Other)
  Sender: FDA-Public Use
  Company Number: JM-JNJFOC-20090502315

PATIENT
  Sex: Male
  Weight: 2.5 kg

DRUGS (3)
  1. HALOPERIDOL [Suspect]
     Indication: DRUG EXPOSURE DURING PREGNANCY
  2. LITHIUM [Suspect]
     Indication: DRUG EXPOSURE DURING PREGNANCY
  3. COGENTIN [Suspect]
     Indication: DRUG EXPOSURE DURING PREGNANCY

REACTIONS (1)
  - SMALL FOR DATES BABY [None]
